FAERS Safety Report 6937930-2 (Version None)
Quarter: 2010Q3

REPORT INFORMATION
  Report Type: 
  Country: None (occurrence: None)
  Receive Date: 20100824
  Receipt Date: 20100812
  Transmission Date: 20110219
  Serious: No
  Sender: FDA-Public Use
  Company Number: US-BIOGENIDEC-2010BI028450

PATIENT
  Sex: Female

DRUGS (2)
  1. TYSABRI [Suspect]
     Indication: MULTIPLE SCLEROSIS
     Route: 042
     Dates: start: 20100415
  2. COPAXONE [Concomitant]
     Indication: MULTIPLE SCLEROSIS

REACTIONS (2)
  - DEPRESSION [None]
  - MULTIPLE SCLEROSIS RELAPSE [None]
